FAERS Safety Report 10726170 (Version 1)
Quarter: 2015Q1

REPORT INFORMATION
  Report Type: Spontaneous
  Country: US (occurrence: US)
  Receive Date: 20150121
  Receipt Date: 20150121
  Transmission Date: 20150721
  Serious: Yes (Other)
  Sender: FDA-Public Use
  Company Number: US-AMGEN-USASP2015004373

PATIENT
  Sex: Female

DRUGS (1)
  1. ENBREL [Suspect]
     Active Substance: ETANERCEPT
     Indication: RHEUMATOID ARTHRITIS
     Dosage: UNK
     Route: 065
     Dates: start: 20140215

REACTIONS (4)
  - Suicidal ideation [Unknown]
  - Crying [Unknown]
  - Anger [Unknown]
  - Conversion disorder [Unknown]

NARRATIVE: CASE EVENT DATE: 20150115
